FAERS Safety Report 6506037-0 (Version None)
Quarter: 2009Q4

REPORT INFORMATION
  Report Type: 
  Country: None (occurrence: None)
  Receive Date: 20091201
  Receipt Date: 20090805
  Transmission Date: 20100525
  Serious: Yes (Hospitalization)
  Sender: FDA-Public Use
  Company Number: 2008-183090-NL

PATIENT
  Age: 20 Year
  Sex: Female
  Weight: 77.1 kg

DRUGS (6)
  1. NUVARING [Suspect]
     Indication: CONTRACEPTION
     Dates: start: 20060301, end: 20071128
  2. CLARITHROMYCIN [Concomitant]
  3. RETIN-A [Concomitant]
  4. CIPROFLOXACIN HCL [Concomitant]
  5. SULFAMETHOXAZOLE [Concomitant]
  6. METRONIDAZOLE [Concomitant]

REACTIONS (3)
  - DEEP VEIN THROMBOSIS [None]
  - DYSPNOEA [None]
  - PELVIC PAIN [None]
